FAERS Safety Report 24853202 (Version 1)
Quarter: 2025Q1

REPORT INFORMATION
  Report Type: Report from Study
  Country: US (occurrence: US)
  Receive Date: 20250117
  Receipt Date: 20250117
  Transmission Date: 20250409
  Serious: Yes (Hospitalization, Other)
  Sender: ALEXION PHARMACEUTICALS
  Company Number: US-AstraZeneca-CH-00785364A

PATIENT

DRUGS (8)
  1. TICAGRELOR [Suspect]
     Active Substance: TICAGRELOR
  2. TICAGRELOR [Suspect]
     Active Substance: TICAGRELOR
     Route: 048
  3. TICAGRELOR [Suspect]
     Active Substance: TICAGRELOR
  4. TICAGRELOR [Suspect]
     Active Substance: TICAGRELOR
     Route: 048
  5. ACALABRUTINIB [Suspect]
     Active Substance: ACALABRUTINIB
     Route: 065
  6. ACALABRUTINIB [Suspect]
     Active Substance: ACALABRUTINIB
     Route: 065
  7. ACALABRUTINIB [Suspect]
     Active Substance: ACALABRUTINIB
     Route: 065
  8. ACALABRUTINIB [Suspect]
     Active Substance: ACALABRUTINIB
     Route: 065

REACTIONS (9)
  - Angina unstable [Unknown]
  - Hypertension [Unknown]
  - Lymphoma [Unknown]
  - Prostate cancer [Unknown]
  - Chest pain [Unknown]
  - Coronary artery disease [Unknown]
  - Left ventricular dysfunction [Unknown]
  - Ejection fraction abnormal [Unknown]
  - Product dose omission issue [Unknown]
